FAERS Safety Report 9368899 (Version 1)
Quarter: 2013Q2

REPORT INFORMATION
  Report Type: Spontaneous
  Country: KR (occurrence: None)
  Receive Date: 20130624
  Receipt Date: 20130624
  Transmission Date: 20140414
  Serious: Yes (Death)
  Sender: FDA-Public Use
  Company Number: FK201302117

PATIENT
  Age: 48 Year
  Sex: Female

DRUGS (2)
  1. PACLITAXEL (MANUFACTURER UNKNOWN) (PACLITAXEL) (PACLITAXEL) [Suspect]
     Indication: LEIOMYOSARCOMA
     Route: 042
  2. CARBOPLATIN (MANUFACTURER UNKNOWN) (CARBOPLATIN) (CARBOPLATIN) [Suspect]
     Indication: LEIOMYOSARCOMA
     Dosage: AUC 5, INTRAVENOUS
     Route: 042

REACTIONS (1)
  - Septic shock [None]
